FAERS Safety Report 15185753 (Version 2)
Quarter: 2019Q2

REPORT INFORMATION
  Report Type: Spontaneous
  Country: NO (occurrence: NO)
  Receive Date: 20180723
  Receipt Date: 20190416
  Transmission Date: 20190711
  Serious: Yes (Disabling)
  Sender: FDA-Public Use
  Company Number: NO-ELI_LILLY_AND_COMPANY-NO201807005886

PATIENT
  Sex: Male

DRUGS (4)
  1. CISORDINOL-ACUTARD [Concomitant]
     Active Substance: ZUCLOPENTHIXOL ACETATE
     Indication: PRODUCT USED FOR UNKNOWN INDICATION
     Dosage: UNK, UNKNOWN
     Route: 065
  2. XEPLION [Suspect]
     Active Substance: PALIPERIDONE PALMITATE
     Indication: PRODUCT USED FOR UNKNOWN INDICATION
     Dosage: 100 MG, MONTHLY (1/M)
     Route: 065
     Dates: start: 201207
  3. ZYPREXA [Suspect]
     Active Substance: OLANZAPINE
     Indication: PRODUCT USED FOR UNKNOWN INDICATION
     Dosage: 20 MG, UNKNOWN
     Route: 065
  4. RIVOTRIL [Concomitant]
     Active Substance: CLONAZEPAM
     Indication: ANXIETY DISORDER
     Dosage: 0.5MG - 1 MG, UNKNOWN
     Route: 065

REACTIONS (10)
  - Schizophrenia [Recovering/Resolving]
  - Anxiety disorder [Unknown]
  - Memory impairment [Unknown]
  - Blood glucose increased [Unknown]
  - Blood cholesterol increased [Unknown]
  - Drug ineffective [Unknown]
  - Hunger [Unknown]
  - Weight increased [Unknown]
  - Dizziness [Unknown]
  - Prescribed overdose [Unknown]

NARRATIVE: CASE EVENT DATE: 2005
